FAERS Safety Report 13891682 (Version 2)
Quarter: 2018Q2

REPORT INFORMATION
  Report Type: Spontaneous
  Country: RU (occurrence: RU)
  Receive Date: 20170822
  Receipt Date: 20180615
  Transmission Date: 20180711
  Serious: Yes (Other)
  Sender: FDA-Public Use
  Company Number: RU-ASTRAZENECA-2017SE85170

PATIENT
  Age: 81 Year
  Sex: Female
  Weight: 72 kg

DRUGS (12)
  1. DIUVER [Concomitant]
     Active Substance: TORSEMIDE
     Dosage: 10.0MG UNKNOWN
  2. DIUVER [Concomitant]
     Active Substance: TORSEMIDE
     Dosage: 5.0MG UNKNOWN
  3. NOLPAZA [Concomitant]
     Active Substance: PANTOPRAZOLE SODIUM
  4. CONCOR [Concomitant]
     Active Substance: BISOPROLOL FUMARATE
  5. CARDIOMAGNYL [Concomitant]
     Active Substance: ASPIRIN\MAGNESIUM HYDROXIDE
  6. ROSUCARD [Concomitant]
     Active Substance: ROSUVASTATIN CALCIUM
  7. LOZAP [Concomitant]
  8. PREDUCTAL A [Concomitant]
  9. CORAXAN [Concomitant]
  10. BRILINTA [Suspect]
     Active Substance: TICAGRELOR
     Indication: MYOCARDIAL INFARCTION
     Route: 048
     Dates: start: 20170318
  11. PERINEVA [Concomitant]
     Active Substance: PERINDOPRIL ERBUMINE
  12. DIUVER [Concomitant]
     Active Substance: TORSEMIDE
     Dosage: 5.0MG UNKNOWN

REACTIONS (8)
  - Large intestine polyp [Unknown]
  - Product use issue [Unknown]
  - Pain [Not Recovered/Not Resolved]
  - Cholelithiasis [Unknown]
  - Off label use [Unknown]
  - Limb discomfort [Not Recovered/Not Resolved]
  - Haemorrhoidal haemorrhage [Unknown]
  - Dyspnoea [Not Recovered/Not Resolved]

NARRATIVE: CASE EVENT DATE: 201706
